FAERS Safety Report 14775312 (Version 2)
Quarter: 2018Q2

REPORT INFORMATION
  Report Type: Spontaneous
  Country: JP (occurrence: JP)
  Receive Date: 20180418
  Receipt Date: 20180508
  Transmission Date: 20180711
  Serious: Yes (Other)
  Sender: FDA-Public Use
  Company Number: JP-REGENERON PHARMACEUTICALS, INC.-2018-20865

PATIENT

DRUGS (3)
  1. EYLEA [Suspect]
     Active Substance: AFLIBERCEPT
     Indication: AGE-RELATED MACULAR DEGENERATION
     Dosage: UNK UNK, ONCE
     Route: 031
  2. EYLEA [Suspect]
     Active Substance: AFLIBERCEPT
     Dosage: UNK UNK, ONCE
     Route: 031
  3. EYLEA [Suspect]
     Active Substance: AFLIBERCEPT
     Dosage: UNK UNK, ONCE
     Route: 031

REACTIONS (7)
  - Endophthalmitis [Recovering/Resolving]
  - Drug hypersensitivity [Unknown]
  - Keratic precipitates [Recovered/Resolved]
  - Visual impairment [Recovering/Resolving]
  - Periphlebitis [Recovering/Resolving]
  - Retinal haemorrhage [Recovering/Resolving]
  - Anterior chamber fibrin [Recovering/Resolving]
